FAERS Safety Report 26109031 (Version 1)
Quarter: 2025Q4

REPORT INFORMATION
  Report Type: Spontaneous
  Country: US (occurrence: US)
  Receive Date: 20251201
  Receipt Date: 20251201
  Transmission Date: 20260117
  Serious: No
  Sender: GILEAD
  Company Number: US-GILEAD-2025-0738713

PATIENT

DRUGS (2)
  1. TRODELVY [Suspect]
     Active Substance: SACITUZUMAB GOVITECAN-HZIY
     Indication: Triple negative breast cancer
     Dosage: 6 CYCLE
     Route: 065
  2. NEULASTA [Concomitant]
     Active Substance: PEGFILGRASTIM

REACTIONS (2)
  - Alopecia [Unknown]
  - Abdominal pain upper [Unknown]
